FAERS Safety Report 18414885 (Version 1)
Quarter: 2020Q4

REPORT INFORMATION
  Report Type: Spontaneous
  Country: GB (occurrence: GB)
  Receive Date: 20201022
  Receipt Date: 20201022
  Transmission Date: 20210114
  Serious: Yes (Hospitalization)
  Sender: FDA-Public Use
  Company Number: GB-TEVA-2020-GB-1839962

PATIENT
  Age: 49 Year
  Sex: Female

DRUGS (1)
  1. PREDNISOLONE. [Suspect]
     Active Substance: PREDNISOLONE
     Dosage: UNIT DOSE : 30 MG
     Route: 048
     Dates: start: 20200805, end: 20200914

REACTIONS (1)
  - Psychotic disorder [Not Recovered/Not Resolved]
